FAERS Safety Report 13034771 (Version 1)
Quarter: 2016Q4

REPORT INFORMATION
  Report Type: Spontaneous
  Country: US (occurrence: US)
  Receive Date: 20161216
  Receipt Date: 20161216
  Transmission Date: 20170207
  Serious: No
  Sender: FDA-Public Use
  Company Number: US-BAUSCH-BL-2016-006384

PATIENT
  Age: 91 Year
  Sex: Female

DRUGS (3)
  1. TIMOPTIC [Suspect]
     Active Substance: TIMOLOL MALEATE
     Indication: OPEN ANGLE GLAUCOMA
     Route: 047
     Dates: start: 2015
  2. TRAVATAN Z [Concomitant]
     Active Substance: TRAVOPROST
     Indication: PRODUCT USED FOR UNKNOWN INDICATION
     Dosage: ONE DROP IN EACH EYE AT NIGHTTIME
     Route: 047
  3. TIMOPTIC [Suspect]
     Active Substance: TIMOLOL MALEATE
     Route: 047

REACTIONS (2)
  - Intraocular pressure increased [Not Recovered/Not Resolved]
  - Dizziness [Not Recovered/Not Resolved]
